FAERS Safety Report 6665418-5 (Version None)
Quarter: 2010Q2

REPORT INFORMATION
  Report Type: 
  Country: None (occurrence: None)
  Receive Date: 20100402
  Receipt Date: 20100325
  Transmission Date: 20101027
  Serious: Yes (Other)
  Sender: FDA-Public Use
  Company Number: CA-PURDUE-CAN-2010-0001298

PATIENT
  Age: 48 Year
  Sex: Female

DRUGS (5)
  1. OXYCONTIN [Suspect]
     Indication: PAIN
     Dosage: UNK
     Route: 048
     Dates: start: 20090401, end: 20100320
  2. MS IR TABLETS 5 MG [Suspect]
     Dosage: 1 TABLET, Q1H PRN
     Route: 048
     Dates: start: 20100301, end: 20100301
  3. CAPTOPRIL [Suspect]
     Indication: HYPERTENSION
     Dosage: 12.5 MG, BID
     Route: 048
  4. PERCOCET [Concomitant]
     Indication: PAIN
     Dosage: UNK
     Route: 048
     Dates: start: 20100323
  5. PERCOCET [Concomitant]
     Dosage: UNK
     Route: 048
     Dates: end: 20090401

REACTIONS (9)
  - DRUG INEFFECTIVE [None]
  - FATIGUE [None]
  - HYPERTENSION [None]
  - INTERCEPTED MEDICATION ERROR [None]
  - MALAISE [None]
  - OEDEMA MOUTH [None]
  - PRURITUS [None]
  - SWELLING FACE [None]
  - URTICARIA [None]
